FAERS Safety Report 7699561-9 (Version None)
Quarter: 2011Q3

REPORT INFORMATION
  Report Type: 
  Country: None (occurrence: None)
  Receive Date: 20110822
  Receipt Date: 20110818
  Transmission Date: 20111222
  Serious: Yes (Death, Hospitalization, Disabling)
  Sender: FDA-Public Use
  Company Number: US-BRISTOL-MYERS SQUIBB COMPANY-15724685

PATIENT
  Age: 85 Year
  Sex: Male

DRUGS (34)
  1. LEVOTHYROXINE SODIUM [Concomitant]
     Route: 048
     Dates: start: 20100917
  2. ZOCOR [Concomitant]
  3. SIMVASTATIN [Concomitant]
     Route: 048
     Dates: start: 20091004
  4. CALCIUM CARBONATE [Concomitant]
     Dosage: 1DF=2TAB
     Route: 048
     Dates: start: 20091004
  5. PROCHLORPERAZINE [Concomitant]
     Dosage: EVERY 6 HRS AS NEEDED
     Route: 048
     Dates: start: 20100924
  6. SOLU-MEDROL [Concomitant]
     Route: 042
  7. HYDRALAZINE HCL [Concomitant]
  8. OS-CAL [Concomitant]
     Route: 048
  9. PREDNISONE [Concomitant]
  10. COLACE [Concomitant]
     Route: 048
  11. NIACIN [Concomitant]
     Route: 048
     Dates: start: 20021003
  12. FISH OIL [Concomitant]
     Dosage: 1DF=1TAB
     Route: 048
     Dates: start: 20090203
  13. TRANDOLAPRIL [Concomitant]
     Route: 048
     Dates: start: 20091004
  14. PROTONIX [Concomitant]
     Route: 048
  15. METHYLPREDNISOLONE [Concomitant]
     Route: 048
     Dates: start: 20110303
  16. PANTOPRAZOLE [Concomitant]
  17. BACTROBAN [Concomitant]
     Dosage: BILATERAL NARES
  18. CARVEDILOL [Concomitant]
     Route: 048
     Dates: start: 20100610
  19. ASPIRIN [Concomitant]
     Dosage: THERAPY ON 24MAR11
     Route: 048
     Dates: start: 20110303
  20. IBUPROFEN [Concomitant]
     Dates: start: 20110324
  21. ACETAMINOPHEN [Concomitant]
     Route: 048
     Dates: start: 20100928
  22. POTASSIUM CHLORIDE [Concomitant]
  23. ZOFRAN [Concomitant]
  24. ZOLOFT [Concomitant]
     Route: 048
  25. SENOKOT [Concomitant]
     Dosage: 1DF:2TABS
     Route: 048
  26. IPILIMUMAB [Suspect]
     Indication: MALIGNANT MELANOMA
     Route: 042
     Dates: start: 20110303, end: 20110504
  27. CYANOCOBALAMIN [Concomitant]
     Route: 048
     Dates: start: 20091104
  28. SERTRALINE HYDROCHLORIDE [Concomitant]
     Route: 048
     Dates: start: 20110415
  29. SYNTHROID [Concomitant]
     Route: 048
  30. LAXATIVES [Concomitant]
  31. MORPHINE SULFATE [Concomitant]
  32. ASACOL [Concomitant]
     Route: 048
  33. VITAMIN B-12 [Concomitant]
  34. ZYPREXA [Concomitant]
     Route: 048

REACTIONS (3)
  - PULMONARY EMBOLISM [None]
  - NEOPLASM MALIGNANT [None]
  - COLITIS [None]
